FAERS Safety Report 19380908 (Version 2)
Quarter: 2021Q2

REPORT INFORMATION
  Report Type: Report from Study
  Country: FR (occurrence: FR)
  Receive Date: 20210607
  Receipt Date: 20210610
  Transmission Date: 20210717
  Serious: Yes (Hospitalization)
  Sender: FDA-Public Use
  Company Number: FR-GLAXOSMITHKLINE-FR2020GSK257091

PATIENT
  Age: 72 Year
  Sex: Female
  Weight: 55 kg

DRUGS (20)
  1. CARBOPLATIN. [Suspect]
     Active Substance: CARBOPLATIN
     Indication: OVARIAN CANCER
     Dosage: 5 AUC
     Route: 042
     Dates: start: 20201030, end: 20201030
  2. DOSTARLIMAB [Suspect]
     Active Substance: DOSTARLIMAB
     Indication: OVARIAN CANCER
     Dosage: 500 MG
     Dates: start: 20201123, end: 20201123
  3. EMEND [Concomitant]
     Active Substance: APREPITANT
     Indication: PROPHYLACTIC CHEMOTHERAPY
     Dosage: 125 MG, QD
     Route: 048
     Dates: start: 20201214, end: 20201214
  4. EBASTINE [Concomitant]
     Active Substance: EBASTINE
     Dosage: 10 MG, TID
     Route: 048
     Dates: start: 20201228, end: 20210106
  5. CISPLATIN. [Concomitant]
     Active Substance: CISPLATIN
     Dosage: UNK
  6. PREDNISOLONE. [Concomitant]
     Active Substance: PREDNISOLONE
     Indication: PROPHYLACTIC CHEMOTHERAPY
     Dosage: 120 MG, QD
     Route: 048
     Dates: start: 20201213, end: 20201214
  7. BEVACIZUMAB. [Suspect]
     Active Substance: BEVACIZUMAB
     Indication: OVARIAN CANCER
     Dosage: 838 MG (15 MG/KG) IN 145,50 ML
     Route: 042
     Dates: start: 20201123
  8. CETRIZINE [Concomitant]
     Active Substance: CETIRIZINE HYDROCHLORIDE
     Indication: PROPHYLACTIC CHEMOTHERAPY
     Dosage: 10 MG, QD
     Route: 048
     Dates: start: 20201214, end: 20201214
  9. NIVESTIM [Concomitant]
     Active Substance: FILGRASTIM
     Indication: PROPHYLACTIC CHEMOTHERAPY
     Dosage: 30 DF (OTHER), QD
     Route: 058
     Dates: start: 20201217, end: 20201221
  10. EBASTINE [Concomitant]
     Active Substance: EBASTINE
     Indication: DERMATITIS EXFOLIATIVE GENERALISED
     Dosage: 10 MG, TID
     Route: 048
     Dates: start: 20201221, end: 20201228
  11. CARBOPLATIN. [Suspect]
     Active Substance: CARBOPLATIN
     Dosage: 5 AUC
     Route: 042
     Dates: start: 20201214, end: 20201214
  12. BEVACIZUMAB. [Suspect]
     Active Substance: BEVACIZUMAB
     Dosage: 838 MG/KG
     Route: 042
     Dates: start: 20201214, end: 20201214
  13. DOSTARLIMAB [Suspect]
     Active Substance: DOSTARLIMAB
     Dosage: 500 MG
     Dates: start: 20201214, end: 20201214
  14. PACLITAXEL. [Suspect]
     Active Substance: PACLITAXEL
     Indication: OVARIAN CANCER
     Dosage: 276 MG
     Route: 042
     Dates: start: 20201030, end: 20201030
  15. EMEND [Concomitant]
     Active Substance: APREPITANT
     Dosage: 80 MG, QD
     Route: 048
     Dates: start: 20201215, end: 20201216
  16. EBASTINE [Concomitant]
     Active Substance: EBASTINE
     Indication: RASH
     Dosage: 10 MG, QD
     Route: 048
     Dates: start: 20201216, end: 20201221
  17. PACLITAXEL. [Suspect]
     Active Substance: PACLITAXEL
     Dosage: 276 MG
     Route: 042
     Dates: start: 20201214, end: 20201214
  18. DOCETAXEL. [Concomitant]
     Active Substance: DOCETAXEL
  19. ZOPHREN [Concomitant]
     Active Substance: ONDANSETRON
     Indication: PROPHYLACTIC CHEMOTHERAPY
     Dosage: 8 MG, BID
     Route: 048
     Dates: start: 20201214, end: 20201214
  20. BETNEVAL [Concomitant]
     Active Substance: BETAMETHASONE VALERATE
     Indication: RASH
     Dosage: 30 MG, QD
     Route: 003
     Dates: start: 20201221, end: 20201228

REACTIONS (1)
  - Dermatitis exfoliative generalised [Recovered/Resolved]

NARRATIVE: CASE EVENT DATE: 20201228
